FAERS Safety Report 4697795-9 (Version None)
Quarter: 2005Q2

REPORT INFORMATION
  Report Type: 
  Country: None (occurrence: None)
  Receive Date: 20050119
  Receipt Date: 20050119
  Transmission Date: 20051028
  Serious: No
  Sender: FDA-Public Use
  Company Number: None

PATIENT
  Sex: Female
  Weight: 106.5953 kg

DRUGS (2)
  1. DILANTIN [Suspect]
     Indication: COGNITIVE DISORDER
     Dosage: 350 MG 1 PO Q DAILY
     Route: 048
  2. DILANTIN [Suspect]
     Indication: CONVULSION
     Dosage: 350 MG 1 PO Q DAILY
     Route: 048

REACTIONS (2)
  - COGNITIVE DISORDER [None]
  - COMPLEX PARTIAL SEIZURES [None]
